FAERS Safety Report 6094853-1 (Version None)
Quarter: 2009Q1

REPORT INFORMATION
  Report Type: 
  Country: None (occurrence: None)
  Receive Date: 20090227
  Receipt Date: 20090223
  Transmission Date: 20090719
  Serious: No
  Sender: FDA-Public Use
  Company Number: US-JNJFOC-20090203479

PATIENT
  Sex: Female
  Weight: 63.5 kg

DRUGS (4)
  1. DURAGESIC-100 [Suspect]
     Indication: PELVIC PAIN
     Route: 062
  2. DURAGESIC-100 [Suspect]
     Indication: BACK PAIN
     Route: 062
  3. DURAGESIC-100 [Suspect]
     Indication: CYSTITIS INTERSTITIAL
     Route: 062
  4. UNSPECIFIED MEDICATIONS [Concomitant]

REACTIONS (2)
  - OFF LABEL USE [None]
  - WRONG TECHNIQUE IN DRUG USAGE PROCESS [None]
